FAERS Safety Report 25676312 (Version 1)
Quarter: 2025Q3

REPORT INFORMATION
  Report Type: Spontaneous
  Country: CN (occurrence: CN)
  Receive Date: 20250813
  Receipt Date: 20250813
  Transmission Date: 20251020
  Serious: Yes (Other)
  Sender: Haleon PLC
  Company Number: CN-HALEON-2257590

PATIENT
  Age: 29 Year
  Sex: Male

DRUGS (1)
  1. IBUPROFEN [Suspect]
     Active Substance: IBUPROFEN
     Indication: Myalgia

REACTIONS (8)
  - Drug-induced liver injury [Recovering/Resolving]
  - Nausea [Recovering/Resolving]
  - Acute kidney injury [Recovering/Resolving]
  - Yellow skin [Recovering/Resolving]
  - Myocardial injury [Recovering/Resolving]
  - Hepatic failure [Recovering/Resolving]
  - Vomiting [Recovering/Resolving]
  - Ocular icterus [Recovering/Resolving]
